FAERS Safety Report 16768929 (Version 1)
Quarter: 2019Q3

REPORT INFORMATION
  Report Type: Spontaneous
  Country: US (occurrence: US)
  Receive Date: 20190903
  Receipt Date: 20190903
  Transmission Date: 20191005
  Serious: No
  Sender: FDA-Public Use
  Company Number: US-SA-2019SA239702

PATIENT
  Age: 62 Year
  Sex: Female

DRUGS (1)
  1. SOLIQUA 100/33 [Suspect]
     Active Substance: INSULIN GLARGINE\LIXISENATIDE
     Indication: TYPE 1 DIABETES MELLITUS
     Dosage: 33 U, QD
     Route: 058
     Dates: start: 20210718

REACTIONS (3)
  - Incorrect dose administered by device [Unknown]
  - Device operational issue [Unknown]
  - Wrong technique in device usage process [Unknown]
